FAERS Safety Report 23354362 (Version 1)
Quarter: 2024Q1

REPORT INFORMATION
  Report Type: Spontaneous
  Country: ES (occurrence: ES)
  Receive Date: 20240101
  Receipt Date: 20240101
  Transmission Date: 20240409
  Serious: Yes (Hospitalization)
  Sender: FDA-Public Use
  Company Number: None

PATIENT
  Age: 91 Year
  Sex: Male
  Weight: 63 kg

DRUGS (3)
  1. FUROSEMIDE [Interacting]
     Active Substance: FUROSEMIDE
     Indication: Cardiac failure
     Dosage: 120 MG PER DAY AS A CONTINUOUS INFUSION
     Dates: start: 20231005, end: 20231018
  2. CHLORTHALIDONE [Interacting]
     Active Substance: CHLORTHALIDONE
     Indication: Cardiac failure
     Dosage: STRENGTH: 50 MG, 25 MG EVERY 48 HOURS
     Dates: start: 20231005, end: 20231018
  3. ACETAZOLAMIDE [Interacting]
     Active Substance: ACETAZOLAMIDE
     Indication: Cardiac failure
     Dosage: STRENGTH: 250 MG, 1 TABLET ON MONDAYS AND THURSDAYS
     Dates: start: 20231005, end: 20231018

REACTIONS (3)
  - Hyponatraemia [Recovered/Resolved]
  - Neurological decompensation [Recovered/Resolved]
  - Acute kidney injury [Recovered/Resolved]

NARRATIVE: CASE EVENT DATE: 20231018
